FAERS Safety Report 12316858 (Version 1)
Quarter: 2016Q2

REPORT INFORMATION
  Report Type: Spontaneous
  Country: US (occurrence: US)
  Receive Date: 20160429
  Receipt Date: 20160429
  Transmission Date: 20160815
  Serious: Yes (Other)
  Sender: FDA-Public Use
  Company Number: US-PFIZER INC-2016233856

PATIENT
  Age: 56 Year
  Sex: Female
  Weight: 109 kg

DRUGS (6)
  1. LYRICA [Suspect]
     Active Substance: PREGABALIN
     Indication: NEUROPATHY PERIPHERAL
     Dosage: 100 MG, 1X/DAY
     Route: 048
     Dates: start: 2002
  2. LYRICA [Suspect]
     Active Substance: PREGABALIN
     Dosage: 100 MG, 3X/DAY
     Route: 048
  3. LISINOPRIL/HCTZ [Concomitant]
     Active Substance: HYDROCHLOROTHIAZIDE\LISINOPRIL
     Indication: HYPERTENSION
     Dosage: [HYDROCHLOROTHIAZIDE 25MG/ LISINOPRIL 20MG], UNK
  4. METOPROLOL ER [Concomitant]
     Active Substance: METOPROLOL SUCCINATE
     Indication: HEART RATE DECREASED
  5. METOPROLOL ER [Concomitant]
     Active Substance: METOPROLOL SUCCINATE
     Indication: VENTRICULAR EXTRASYSTOLES
     Dosage: 25 MG, UNK
  6. LYRICA [Suspect]
     Active Substance: PREGABALIN
     Dosage: 100 MG, 2X/DAY
     Route: 048
     Dates: start: 201502

REACTIONS (4)
  - Drug prescribing error [Unknown]
  - Spinal column stenosis [Unknown]
  - Breast cancer [Unknown]
  - Neurogenic bladder [Unknown]

NARRATIVE: CASE EVENT DATE: 20141021
